FAERS Safety Report 6687946-9 (Version None)
Quarter: 2010Q2

REPORT INFORMATION
  Report Type: 
  Country: None (occurrence: None)
  Receive Date: 20100420
  Receipt Date: 20100412
  Transmission Date: 20101027
  Serious: Yes (Other)
  Sender: FDA-Public Use
  Company Number: US-ASTRAZENECA-2009UW16481

PATIENT
  Age: 16402 Day
  Sex: Male

DRUGS (8)
  1. SEROQUEL [Suspect]
     Route: 048
     Dates: start: 20060320
  2. EFFEXOR XR [Concomitant]
     Dosage: 150 MG TO 225 MG QD
     Dates: start: 20060320
  3. CYCLOBENZAPRINE [Concomitant]
     Indication: MUSCLE SPASMS
     Route: 048
     Dates: start: 20081118
  4. CYCLOBENZAPRINE [Concomitant]
     Indication: BACK PAIN
     Route: 048
     Dates: start: 20081118
  5. DIVALPROEX SODIUM [Concomitant]
     Indication: AFFECTIVE DISORDER
     Route: 048
     Dates: start: 20081118
  6. ETANERCEPT [Concomitant]
     Indication: PSORIATIC ARTHROPATHY
     Dosage: 50 MG/ML DS 4 INJECT 1 SYRINGE (50MG/SYRINGE)
     Route: 058
     Dates: start: 20081118
  7. ISOSORBIDE MONONITRATE [Concomitant]
     Indication: CARDIAC DISORDER
     Route: 048
     Dates: start: 20081118
  8. LISINOPRIL [Concomitant]
     Route: 048
     Dates: start: 20081118

REACTIONS (2)
  - DIABETES MELLITUS [None]
  - NEUROPATHY PERIPHERAL [None]
